FAERS Safety Report 8588520-X (Version None)
Quarter: 2012Q3

REPORT INFORMATION
  Report Type: 
  Country: None (occurrence: None)
  Receive Date: 20120813
  Receipt Date: 20120806
  Transmission Date: 20120928
  Serious: Yes (Other)
  Sender: FDA-Public Use
  Company Number: US-UCBSA-061662

PATIENT
  Sex: Male

DRUGS (9)
  1. TRAMADOL HCL [Concomitant]
     Dosage: 50 MG,  2-4 PER DAY
  2. VALTREX [Concomitant]
  3. FENTANYL [Concomitant]
  4. CIMZIA [Suspect]
     Dosage: 6 DOSES
     Dates: start: 20120501, end: 20120710
  5. SIMVASTATIN [Concomitant]
  6. TRAVATAN Z [Concomitant]
     Dosage: 1 DROP EACH EYE AT BED TIME
     Route: 047
  7. OMEPRAZOLE [Concomitant]
  8. CIMZIA [Suspect]
     Indication: RHEUMATOID ARTHRITIS
     Dates: start: 20110701, end: 20120309
  9. PREDNISONE TAB [Concomitant]
     Dosage: DAILY DOSE : 3MG

REACTIONS (3)
  - DRUG INEFFECTIVE [None]
  - RHEUMATOID ARTHRITIS [None]
  - SPINAL FUSION SURGERY [None]
